FAERS Safety Report 7822149-3 (Version None)
Quarter: 2011Q4

REPORT INFORMATION
  Report Type: 
  Country: None (occurrence: None)
  Receive Date: 20111018
  Receipt Date: 20110222
  Transmission Date: 20120403
  Serious: No
  Sender: FDA-Public Use
  Company Number: US-ASTRAZENECA-2011SE10239

PATIENT
  Age: 81 Year
  Sex: Female

DRUGS (7)
  1. MUCINEX [Concomitant]
  2. ALBUTEROL [Concomitant]
  3. ASPIRIN [Concomitant]
  4. SYMBICORT [Suspect]
     Indication: EMPHYSEMA
     Dosage: 80/4.5 BID
     Route: 055
     Dates: start: 20090101
  5. IPRATROPIUM BROMIDE [Concomitant]
  6. BLOOD PRESSUME MEDICATION [Concomitant]
  7. CHOLESTEROL MEDICATION [Concomitant]

REACTIONS (2)
  - ALOPECIA [None]
  - TOOTH FRACTURE [None]
